FAERS Safety Report 16745172 (Version 8)
Quarter: 2023Q4

REPORT INFORMATION
  Report Type: Spontaneous
  Country: US (occurrence: US)
  Receive Date: 20190827
  Receipt Date: 20231101
  Transmission Date: 20240109
  Serious: Yes (Hospitalization, Other)
  Sender: FDA-Public Use
  Company Number: US-PFIZER INC-2018445511

PATIENT
  Age: 64 Year
  Sex: Female
  Weight: 95 kg

DRUGS (11)
  1. XELJANZ [Suspect]
     Active Substance: TOFACITINIB CITRATE
     Indication: Crohn^s disease
     Dosage: 15 MG, DAILY (5MG TABLET: 1 TAB IN AM AND 2 TABS IN PM)
     Route: 048
     Dates: start: 20190106
  2. XELJANZ [Suspect]
     Active Substance: TOFACITINIB CITRATE
     Indication: Colitis ulcerative
     Dosage: 10 MG, 2X/DAY
     Route: 048
     Dates: start: 201901
  3. XELJANZ [Suspect]
     Active Substance: TOFACITINIB CITRATE
     Dosage: 5 MG, 3X/DAY (ONE 5MG TAB IN THE MORNING AND TWO 5MG TABS AT NIGHT)
  4. XELJANZ [Suspect]
     Active Substance: TOFACITINIB CITRATE
     Dosage: 10 MG, 2X/DAY
  5. XELJANZ [Suspect]
     Active Substance: TOFACITINIB CITRATE
     Dosage: 15 MG, DAILY (5 MG TABLET 1 TAB QAM AND 2 TABS Q PM (15 MG TOTAL PER DAY))
     Route: 048
  6. XELJANZ [Suspect]
     Active Substance: TOFACITINIB CITRATE
     Dosage: 5 MG, 2X/DAY
     Route: 048
  7. XELJANZ [Suspect]
     Active Substance: TOFACITINIB CITRATE
     Dosage: 5 MG, DAILY
     Route: 048
  8. XELJANZ [Suspect]
     Active Substance: TOFACITINIB CITRATE
     Dosage: 15 MG, DAILY (10 MG IN AM AND 5 MG IN PM), 15 MG DAILY DIVIDED BID
     Route: 048
     Dates: start: 20220919
  9. XELJANZ [Suspect]
     Active Substance: TOFACITINIB CITRATE
     Dosage: 15 MG, DAILY (5 MG 1 TAB PO QAM AND 2 TABS PO QPM (15 MG TOTAL PER DAY))
     Route: 048
  10. METFORMIN [Concomitant]
     Active Substance: METFORMIN HYDROCHLORIDE
     Indication: Diabetes mellitus
     Dosage: UNK, 2X/DAY
     Route: 048
     Dates: start: 2018
  11. HYDROCHLOROTHIAZIDE\LOSARTAN [Concomitant]
     Active Substance: HYDROCHLOROTHIAZIDE\LOSARTAN
     Indication: Hypertension
     Dosage: UNK (50/12.5 MG)
     Route: 048
     Dates: start: 2006

REACTIONS (9)
  - Perirectal abscess [Not Recovered/Not Resolved]
  - Anal abscess [Unknown]
  - Drug effective for unapproved indication [Unknown]
  - Off label use [Unknown]
  - Off label use [Unknown]
  - Anorectal disorder [Unknown]
  - Proctitis [Unknown]
  - Fistula [Unknown]
  - Impaired quality of life [Unknown]

NARRATIVE: CASE EVENT DATE: 20190106
